FAERS Safety Report 25022288 (Version 1)
Quarter: 2025Q1

REPORT INFORMATION
  Report Type: Spontaneous
  Country: ES (occurrence: ES)
  Receive Date: 20250228
  Receipt Date: 20250228
  Transmission Date: 20250409
  Serious: Yes (Other)
  Sender: CELLTRION
  Company Number: None

PATIENT

DRUGS (4)
  1. RITUXIMAB [Suspect]
     Active Substance: RITUXIMAB
     Indication: Neuromyelitis optica spectrum disorder
     Route: 042
     Dates: start: 20230127, end: 20230214
  2. INEBILIZUMAB [Suspect]
     Active Substance: INEBILIZUMAB
     Indication: Neuromyelitis optica spectrum disorder
     Route: 042
     Dates: start: 20230505, end: 20230505
  3. INEBILIZUMAB [Suspect]
     Active Substance: INEBILIZUMAB
     Route: 042
     Dates: start: 20230530, end: 20230530
  4. INEBILIZUMAB [Suspect]
     Active Substance: INEBILIZUMAB
     Route: 042
     Dates: start: 20231127, end: 20231127

REACTIONS (2)
  - Bladder transitional cell carcinoma [Recovered/Resolved]
  - Intentional product use issue [Unknown]

NARRATIVE: CASE EVENT DATE: 20231124
